FAERS Safety Report 10571649 (Version 2)
Quarter: 2016Q1

REPORT INFORMATION
  Report Type: Spontaneous
  Country: US (occurrence: US)
  Receive Date: 20141107
  Receipt Date: 20160229
  Transmission Date: 20160525
  Serious: Yes (Hospitalization, Other)
  Sender: FDA-Public Use
  Company Number: US-BAYER-2014-163247

PATIENT
  Age: 22 Year
  Sex: Female

DRUGS (1)
  1. MIRENA [Suspect]
     Active Substance: LEVONORGESTREL
     Indication: CONTRACEPTION
     Dosage: 20 MCG/24HR, CONT
     Route: 015
     Dates: start: 20060728, end: 20060911

REACTIONS (7)
  - Medical device discomfort [None]
  - Uterine perforation [None]
  - Injury [None]
  - Medical device pain [None]
  - Scar [None]
  - Device failure [None]
  - Pain [None]

NARRATIVE: CASE EVENT DATE: 20060911
